FAERS Safety Report 7293345-1 (Version None)
Quarter: 2011Q1

REPORT INFORMATION
  Report Type: 
  Country: None (occurrence: None)
  Receive Date: 20110215
  Receipt Date: 20110204
  Transmission Date: 20110831
  Serious: Yes (Hospitalization, Other)
  Sender: FDA-Public Use
  Company Number: BE-SANOFI-AVENTIS-2010SA038384

PATIENT
  Age: 64 Year
  Sex: Male

DRUGS (11)
  1. 5-FU [Suspect]
     Route: 041
     Dates: start: 20100601, end: 20100601
  2. BEVACIZUMAB [Suspect]
     Route: 041
     Dates: start: 20100615, end: 20100615
  3. ATORVASTATIN CALCIUM [Concomitant]
  4. ALLOPURINOL [Concomitant]
  5. ASPIRIN [Concomitant]
  6. OXALIPLATIN [Suspect]
     Route: 041
     Dates: start: 20100615, end: 20100615
  7. FOLINIC ACID [Suspect]
     Dates: start: 20100601, end: 20100601
  8. 5-FU [Suspect]
     Route: 041
     Dates: start: 20100615, end: 20100615
  9. BEVACIZUMAB [Suspect]
     Route: 041
     Dates: start: 20100601, end: 20100601
  10. OXALIPLATIN [Suspect]
     Route: 041
     Dates: start: 20100601, end: 20100601
  11. BISOPROLOL [Concomitant]

REACTIONS (2)
  - FISTULA [None]
  - WOUND DEHISCENCE [None]
